FAERS Safety Report 10547111 (Version 1)
Quarter: 2014Q4

REPORT INFORMATION
  Report Type: Report from Study
  Country: US (occurrence: US)
  Receive Date: 20141027
  Receipt Date: 20141027
  Transmission Date: 20150529
  Serious: No
  Sender: FDA-Public Use
  Company Number: US-ABBVIE-14P-163-1287585-00

PATIENT
  Age: 33 Year
  Sex: Female

DRUGS (5)
  1. LAMICTAL [Concomitant]
     Active Substance: LAMOTRIGINE
     Indication: SEIZURE
  2. ESTRADIOL. [Concomitant]
     Active Substance: ESTRADIOL
     Indication: PRODUCT USED FOR UNKNOWN INDICATION
  3. LUPRON DEPOT [Suspect]
     Active Substance: LEUPROLIDE ACETATE
     Indication: ENDOMETRIOSIS
     Dates: start: 201407
  4. PROGESTERONE. [Concomitant]
     Active Substance: PROGESTERONE
     Indication: PRODUCT USED FOR UNKNOWN INDICATION
  5. KEPPRA [Concomitant]
     Active Substance: LEVETIRACETAM
     Indication: SEIZURE

REACTIONS (1)
  - Hot flush [Not Recovered/Not Resolved]

NARRATIVE: CASE EVENT DATE: 20140827
